FAERS Safety Report 6266021-1 (Version None)
Quarter: 2009Q3

REPORT INFORMATION
  Report Type: 
  Country: None (occurrence: None)
  Receive Date: 20090713
  Receipt Date: 20090706
  Transmission Date: 20100115
  Serious: Yes (Life-Threatening, Hospitalization)
  Sender: FDA-Public Use
  Company Number: JP-MERCK-0905USA03955

PATIENT
  Age: 87 Year
  Sex: Female
  Weight: 41 kg

DRUGS (5)
  1. HYZAAR [Suspect]
     Indication: HYPERTENSION
     Route: 048
     Dates: start: 20070822, end: 20080729
  2. ADALAT CC [Concomitant]
     Indication: HYPERTENSION
     Route: 048
     Dates: start: 20060208, end: 20080628
  3. CARDENALIN [Concomitant]
     Indication: HYPERTENSION
     Route: 048
     Dates: start: 20060208, end: 20080728
  4. ARTIST [Concomitant]
     Route: 048
     Dates: start: 20060208, end: 20080728
  5. AMARYL [Concomitant]
     Route: 048
     Dates: start: 20060208, end: 20080728

REACTIONS (2)
  - ALTERED STATE OF CONSCIOUSNESS [None]
  - HYPONATRAEMIA [None]
